FAERS Safety Report 18239805 (Version 1)
Quarter: 2020Q3

REPORT INFORMATION
  Report Type: Spontaneous
  Country: JP (occurrence: JP)
  Receive Date: 20200908
  Receipt Date: 20200908
  Transmission Date: 20201103
  Serious: Yes (Other)
  Sender: FDA-Public Use
  Company Number: JP-NOVITIUMPHARMA-2020JPNVP00043

PATIENT

DRUGS (2)
  1. PREDNISOLONE. [Suspect]
     Active Substance: PREDNISOLONE
     Indication: MYASTHENIA GRAVIS
     Dosage: STARTING AT 5 MG EVERY OTHER DAY AND TITRATED UP TO 10 MG ONCE A DAY FOR 2 DAYS
  2. PYRIDOSTIGMINE BROMIDE. [Suspect]
     Active Substance: PYRIDOSTIGMINE BROMIDE
     Indication: MYASTHENIA GRAVIS

REACTIONS (3)
  - Myasthenia gravis crisis [Unknown]
  - Dropped head syndrome [Unknown]
  - Dyspnoea [Unknown]
